FAERS Safety Report 5066439-9 (Version None)
Quarter: 2006Q3

REPORT INFORMATION
  Report Type: 
  Country: None (occurrence: None)
  Receive Date: 20060728
  Receipt Date: 20060714
  Transmission Date: 20061208
  Serious: Yes (Hospitalization)
  Sender: FDA-Public Use
  Company Number: 2006-145495-NL

PATIENT
  Sex: Female

DRUGS (1)
  1. PUREGON [Suspect]

REACTIONS (2)
  - OESTRADIOL INCREASED [None]
  - PAIN [None]
